FAERS Safety Report 7675418-4 (Version None)
Quarter: 2011Q3

REPORT INFORMATION
  Report Type: 
  Country: None (occurrence: None)
  Receive Date: 20110810
  Receipt Date: 20110711
  Transmission Date: 20111222
  Serious: No
  Sender: FDA-Public Use
  Company Number: US-BAYER-2011-060299

PATIENT
  Age: 78 Year
  Sex: Female
  Weight: 48 kg

DRUGS (10)
  1. MIRALAX [Concomitant]
  2. ZYRTEC [Concomitant]
     Dosage: UNK
  3. VITAMIN TAB [Concomitant]
  4. SYNTHROID [Concomitant]
     Dosage: UNK
  5. SYMBICORT [Concomitant]
     Dosage: UNK
  6. XOPENEX [Concomitant]
     Indication: BRONCHIECTASIS
     Dosage: UNK
     Dates: end: 20110614
  7. GLUCOSAMINE [Concomitant]
  8. SPIRIVA [Concomitant]
     Dosage: UNK
  9. CIPROFLOXACIN HCL [Suspect]
     Dosage: UNK
  10. VIVELLE-DOT [Concomitant]
     Dosage: UNK

REACTIONS (6)
  - NERVOUSNESS [None]
  - TONGUE DISORDER [None]
  - FEELING ABNORMAL [None]
  - ASTHENIA [None]
  - GLOSSODYNIA [None]
  - GAIT DISTURBANCE [None]
